FAERS Safety Report 9341724 (Version 1)
Quarter: 2013Q2

REPORT INFORMATION
  Report Type: Spontaneous
  Country: US (occurrence: US)
  Receive Date: 20130611
  Receipt Date: 20130611
  Transmission Date: 20140414
  Serious: Yes (Other)
  Sender: FDA-Public Use
  Company Number: US-BAYER-2013-069833

PATIENT
  Age: 19 Year
  Sex: Female

DRUGS (3)
  1. YAZ [Suspect]
  2. ZYRTEC [Concomitant]
  3. MOTRIN [Concomitant]

REACTIONS (3)
  - Pelvic venous thrombosis [None]
  - Deep vein thrombosis [Recovering/Resolving]
  - Thrombophlebitis superficial [None]
